FAERS Safety Report 6421877-4 (Version None)
Quarter: 2009Q4

REPORT INFORMATION
  Report Type: 
  Country: None (occurrence: None)
  Receive Date: 20091029
  Receipt Date: 20091029
  Transmission Date: 20100525
  Serious: Yes (Other)
  Sender: FDA-Public Use
  Company Number: None

PATIENT
  Age: 40 Year
  Sex: Female
  Weight: 56.6996 kg

DRUGS (2)
  1. LEVAQUIN [Suspect]
     Indication: SINUSITIS
     Dosage: 1 TAB PER DAY PO
     Route: 048
     Dates: start: 20091021, end: 20091026
  2. ROBITUSSIN/CHERITUSSIN AC WITH CODEINE [Concomitant]

REACTIONS (4)
  - FATIGUE [None]
  - FEAR [None]
  - MYALGIA [None]
  - PYREXIA [None]
